FAERS Safety Report 5118142-4 (Version None)
Quarter: 2006Q3

REPORT INFORMATION
  Report Type: 
  Country: None (occurrence: None)
  Receive Date: 20060928
  Receipt Date: 20060928
  Transmission Date: 20061208
  Serious: Yes (Hospitalization)
  Sender: FDA-Public Use
  Company Number: None

PATIENT
  Sex: Female
  Weight: 30 kg

DRUGS (6)
  1. CYTARABINE [Suspect]
     Dosage: 70 MG IT
     Route: 037
  2. DAUNORUBICIN HCL [Suspect]
     Dosage: 84MG
  3. METHOTREXATE [Suspect]
     Dosage: 15MG IT
     Route: 037
  4. PEG-L-ASPARAGINASE (K-H) [Suspect]
     Dosage: 2750 IU
  5. PREDNISONE TAB [Suspect]
     Dosage: 1260 MG
  6. VINCRISTINE SULFATE [Suspect]
     Dosage: 4.95 MG

REACTIONS (15)
  - BACTERIAL SEPSIS [None]
  - CARDIAC ARREST [None]
  - CHEST X-RAY ABNORMAL [None]
  - ENDOTRACHEAL INTUBATION COMPLICATION [None]
  - GENERAL PHYSICAL HEALTH DETERIORATION [None]
  - HAEMORRHAGE [None]
  - INFECTION IN AN IMMUNOCOMPROMISED HOST [None]
  - LUNG DISORDER [None]
  - OXYGEN SATURATION DECREASED [None]
  - PRODUCTIVE COUGH [None]
  - PSEUDOMONAS INFECTION [None]
  - PULMONARY HAEMORRHAGE [None]
  - RESPIRATORY DISTRESS [None]
  - SHOCK [None]
  - THERAPY NON-RESPONDER [None]
